FAERS Safety Report 18283704 (Version 1)
Quarter: 2020Q3

REPORT INFORMATION
  Report Type: Report from Study
  Country: CA (occurrence: CA)
  Receive Date: 20200918
  Receipt Date: 20200918
  Transmission Date: 20201103
  Serious: Yes (Hospitalization, Other)
  Sender: FDA-Public Use
  Company Number: CA-SAMSUNG BIOEPIS-SB-2020-15275

PATIENT
  Sex: Female
  Weight: 80 kg

DRUGS (1)
  1. RENFLEXIS [Suspect]
     Active Substance: INFLIXIMAB-ABDA
     Indication: SARCOIDOSIS
     Route: 042
     Dates: start: 20191220

REACTIONS (3)
  - Pneumonia [Recovered/Resolved]
  - Nephrolithiasis [Recovered/Resolved]
  - Off label use [Unknown]
